FAERS Safety Report 9202360 (Version 1)
Quarter: 2013Q2

REPORT INFORMATION
  Report Type: Spontaneous
  Country: CA (occurrence: CA)
  Receive Date: 20130401
  Receipt Date: 20130401
  Transmission Date: 20140414
  Serious: Yes (Death, Hospitalization)
  Sender: FDA-Public Use
  Company Number: CA-AMGEN-CANSP2013021600

PATIENT
  Age: 76 Year
  Sex: Female

DRUGS (3)
  1. XGEVA [Suspect]
     Indication: LUNG NEOPLASM MALIGNANT
     Dosage: UNK
     Dates: start: 20130201, end: 20130226
  2. ARANESP [Concomitant]
  3. NEULASTA [Concomitant]

REACTIONS (1)
  - Neoplasm malignant [Fatal]
